FAERS Safety Report 21161761 (Version 1)
Quarter: 2022Q3

REPORT INFORMATION
  Report Type: Spontaneous
  Country: US (occurrence: None)
  Receive Date: 20220802
  Receipt Date: 20220802
  Transmission Date: 20221027
  Serious: Yes (Hospitalization)
  Sender: FDA-Public Use
  Company Number: None

PATIENT
  Age: 69 Year
  Sex: Male
  Weight: 94.8 kg

DRUGS (11)
  1. ABIRATERONE ACETATE [Suspect]
     Active Substance: ABIRATERONE ACETATE
     Indication: Prostate cancer
     Dosage: 1000MG DAILY ORAL
  2. BICALUTAMIDE [Concomitant]
  3. CITALOPRAM [Concomitant]
  4. IBU [Concomitant]
  5. LISINOPRIL [Concomitant]
  6. NAPROXEN [Concomitant]
  7. PREDNISONE [Concomitant]
  8. ROSUVASTATIN [Concomitant]
  9. SUPREP BOWEL PREP KIT [Concomitant]
  10. VOLTAREN [Concomitant]
  11. ASPIRIN [Concomitant]

REACTIONS (1)
  - Viral myelitis [None]

NARRATIVE: CASE EVENT DATE: 20220729
